FAERS Safety Report 9315112 (Version 1)
Quarter: 2013Q2

REPORT INFORMATION
  Report Type: Spontaneous
  Country: US (occurrence: US)
  Receive Date: 20130529
  Receipt Date: 20130529
  Transmission Date: 20140414
  Serious: No
  Sender: FDA-Public Use
  Company Number: US-MYLANLABS-2013S1004071

PATIENT
  Age: 75 Year
  Sex: Female
  Weight: 53.07 kg

DRUGS (2)
  1. BUPROPION HYDROCHLORIDE TABLETS [Suspect]
     Indication: DEPRESSION
     Route: 048
     Dates: start: 201301
  2. JANUVIA [Concomitant]
     Indication: DIABETES MELLITUS
     Dates: start: 2012

REACTIONS (1)
  - Somnolence [Not Recovered/Not Resolved]
